FAERS Safety Report 16057178 (Version 1)
Quarter: 2019Q1

REPORT INFORMATION
  Report Type: Spontaneous
  Country: JP (occurrence: JP)
  Receive Date: 20190311
  Receipt Date: 20190311
  Transmission Date: 20190418
  Serious: Yes (Death, Other)
  Sender: FDA-Public Use
  Company Number: JP-PFIZER INC-2018467918

PATIENT
  Age: 59 Year
  Sex: Female

DRUGS (4)
  1. IBRANCE [Suspect]
     Active Substance: PALBOCICLIB
     Dosage: 75 MG ONCE DAILY
     Route: 048
     Dates: start: 20180930, end: 20181002
  2. IBRANCE [Suspect]
     Active Substance: PALBOCICLIB
     Indication: BREAST CANCER
     Dosage: 125 MG ONCE DAILY
     Route: 048
     Dates: start: 20180921, end: 20180927
  3. IBRANCE [Suspect]
     Active Substance: PALBOCICLIB
     Dosage: 75 MG, 1X/DAY
     Route: 048
     Dates: start: 20181025, end: 20181104
  4. IBRANCE [Suspect]
     Active Substance: PALBOCICLIB
     Dosage: 100 MG ONCE DAILY
     Route: 048
     Dates: start: 20180928, end: 20180929

REACTIONS (12)
  - Ascites [Fatal]
  - Anaemia [Fatal]
  - Haemorrhagic ascites [Unknown]
  - Pulmonary oedema [Fatal]
  - Haemoglobin decreased [Unknown]
  - Carbohydrate antigen 15-3 increased [Unknown]
  - Neutrophil count decreased [Recovered/Resolved]
  - White blood cell count decreased [Recovered/Resolved]
  - Carcinoembryonic antigen increased [Unknown]
  - Platelet count decreased [Unknown]
  - Neoplasm progression [Fatal]
  - Neutrophil count increased [Unknown]

NARRATIVE: CASE EVENT DATE: 20180927
